FAERS Safety Report 6998597-0 (Version None)
Quarter: 2010Q3

REPORT INFORMATION
  Report Type: 
  Country: None (occurrence: None)
  Receive Date: 20100920
  Receipt Date: 20070711
  Transmission Date: 20110219
  Serious: Yes (Other)
  Sender: FDA-Public Use
  Company Number: US-ASTRAZENECA-2006UW25511

PATIENT
  Age: 600 Month
  Sex: Female

DRUGS (16)
  1. SEROQUEL [Suspect]
     Indication: MAJOR DEPRESSION
     Route: 048
     Dates: start: 20000101, end: 20050101
  2. SEROQUEL [Suspect]
     Indication: INSOMNIA
     Route: 048
     Dates: start: 20000101, end: 20050101
  3. SEROQUEL [Suspect]
     Dosage: 100-200 MG
     Route: 048
     Dates: start: 20031218
  4. SEROQUEL [Suspect]
     Dosage: 100-200 MG
     Route: 048
     Dates: start: 20031218
  5. PHENTERMINE [Concomitant]
     Dates: start: 20020101, end: 20060101
  6. GEODON [Concomitant]
     Dates: start: 20070310
  7. ZYPREXA [Concomitant]
     Dates: start: 20061101
  8. ZYPREXA [Concomitant]
     Dates: start: 20070101, end: 20070301
  9. ZYPREXA [Concomitant]
     Dates: start: 20070101, end: 20070301
  10. ZYPREXA [Concomitant]
     Dates: start: 20070101, end: 20070301
  11. LEVEMIR [Concomitant]
     Dosage: 15 UNITS, DAILY
     Dates: start: 20061222
  12. MOTRIN [Concomitant]
     Indication: BACK PAIN
     Dates: start: 19911002
  13. REMERON [Concomitant]
     Indication: INSOMNIA
     Dates: start: 20031218
  14. SERAX [Concomitant]
     Dates: start: 20031218, end: 20061115
  15. LAMICTAL [Concomitant]
     Dates: start: 20061101
  16. PREMARIN [Concomitant]
     Dates: start: 19970915

REACTIONS (2)
  - DIABETES MELLITUS [None]
  - DIABETES MELLITUS INADEQUATE CONTROL [None]
